FAERS Safety Report 6539258-1 (Version None)
Quarter: 2010Q1

REPORT INFORMATION
  Report Type: 
  Country: None (occurrence: None)
  Receive Date: 20100115
  Receipt Date: 20100105
  Transmission Date: 20100710
  Serious: No
  Sender: FDA-Public Use
  Company Number: US-JNJFOC-20100101975

PATIENT
  Sex: Male
  Weight: 94.8 kg

DRUGS (7)
  1. SANDOZ FENTANYL TRANSDERMAL SYSTEM [Suspect]
     Indication: PAIN
     Route: 062
  2. ADVAIR DISKUS 100/50 [Concomitant]
     Indication: ASTHMA
  3. ALBUTEROL [Concomitant]
     Indication: ASTHMA
     Route: 055
  4. NASACORT [Concomitant]
     Indication: ASTHMA
  5. KLONOPIN [Concomitant]
     Indication: PANIC ATTACK
     Route: 048
  6. PRILOSEC [Concomitant]
     Indication: GASTROOESOPHAGEAL REFLUX DISEASE
     Route: 048
  7. SINGULAIR [Concomitant]
     Indication: ASTHMA
     Route: 048

REACTIONS (2)
  - POOR QUALITY DRUG ADMINISTERED [None]
  - THERAPEUTIC RESPONSE DECREASED [None]
